FAERS Safety Report 7502060-8 (Version None)
Quarter: 2011Q2

REPORT INFORMATION
  Report Type: 
  Country: None (occurrence: None)
  Receive Date: 20110523
  Receipt Date: 20110523
  Transmission Date: 20111010
  Serious: No
  Sender: FDA-Public Use
  Company Number: None

PATIENT
  Sex: Female

DRUGS (2)
  1. DURASAL 26% ELORAC [Suspect]
  2. DUREZOL [Suspect]

REACTIONS (2)
  - MEDICATION ERROR [None]
  - PRODUCT NAME CONFUSION [None]
